FAERS Safety Report 4820848-9 (Version None)
Quarter: 2005Q4

REPORT INFORMATION
  Report Type: 
  Country: None (occurrence: None)
  Receive Date: 20051104
  Receipt Date: 20050719
  Transmission Date: 20060501
  Serious: Yes (Hospitalization, Other)
  Sender: FDA-Public Use
  Company Number: US-MERCK-0507USA03138

PATIENT
  Age: 60 Year
  Sex: Male
  Weight: 88 kg

DRUGS (4)
  1. VIOXX [Suspect]
     Indication: SCIATIC NERVE INJURY
     Route: 048
     Dates: start: 20020513, end: 20020701
  2. COZAAR [Concomitant]
     Route: 065
     Dates: start: 20020524, end: 20020601
  3. LIPITOR [Concomitant]
     Route: 065
     Dates: start: 20010919, end: 20031101
  4. ASPIRIN [Concomitant]
     Route: 065
     Dates: start: 19950101

REACTIONS (4)
  - ANGINA UNSTABLE [None]
  - ARTERIOSCLEROSIS CORONARY ARTERY [None]
  - MYOCARDIAL INFARCTION [None]
  - NODULE ON EXTREMITY [None]
